FAERS Safety Report 9202268 (Version 2)
Quarter: 2013Q4

REPORT INFORMATION
  Report Type: Spontaneous
  Country: US (occurrence: US)
  Receive Date: 20130401
  Receipt Date: 20131115
  Transmission Date: 20140711
  Serious: Yes (Other)
  Sender: FDA-Public Use
  Company Number: US-BAYER-2013-038349

PATIENT
  Age: 18 Year
  Sex: Female

DRUGS (5)
  1. YAZ [Suspect]
     Indication: ACNE
  2. YASMIN [Suspect]
     Indication: ACNE
  3. OCELLA [Suspect]
     Indication: ACNE
  4. NYSTATIN [Concomitant]
  5. LACTULOSE [Concomitant]
     Dosage: 10 GRAM/15 ML ONCE DAILY

REACTIONS (5)
  - Gallbladder injury [None]
  - Injury [None]
  - Pain [None]
  - Pain [None]
  - Cholecystitis chronic [None]
